FAERS Safety Report 25335995 (Version 1)
Quarter: 2025Q2

REPORT INFORMATION
  Report Type: Spontaneous
  Country: CN (occurrence: CN)
  Receive Date: 20250520
  Receipt Date: 20250520
  Transmission Date: 20250717
  Serious: Yes (Other)
  Sender: PFIZER
  Company Number: CN-PFIZER INC-PV202500059296

PATIENT
  Age: 77 Year
  Sex: Male
  Weight: 60 kg

DRUGS (1)
  1. LINEZOLID [Suspect]
     Active Substance: LINEZOLID
     Indication: Pneumonia
     Dosage: 600 MG, 2X/DAY
     Route: 048
     Dates: start: 20250501, end: 20250513

REACTIONS (4)
  - Platelet count decreased [Not Recovered/Not Resolved]
  - Haematochezia [Unknown]
  - Mouth haemorrhage [Unknown]
  - Ecchymosis [Unknown]

NARRATIVE: CASE EVENT DATE: 20250507
